FAERS Safety Report 4879976-4 (Version None)
Quarter: 2006Q1

REPORT INFORMATION
  Report Type: 
  Country: None (occurrence: None)
  Receive Date: 20060113
  Receipt Date: 20050705
  Transmission Date: 20060701
  Serious: Yes (Other)
  Sender: FDA-Public Use
  Company Number: US-SANOFI-SYNTHELABO-A03200502011

PATIENT
  Sex: Male
  Weight: 99.8 kg

DRUGS (6)
  1. UROXATRAL [Suspect]
     Indication: PROSTATE EXAMINATION ABNORMAL
     Route: 048
     Dates: start: 20050701
  2. CLONIDINE [Suspect]
     Route: 048
  3. TOPROL [Concomitant]
     Dosage: UNK
     Route: 048
  4. ANGIOTENSIN CONVERTING ENZYME INHIBITOR NOS [Concomitant]
     Dosage: UNK
     Route: 048
  5. ANGIOTENSIN II RECEPTOR BLOCKER NOS [Concomitant]
     Dosage: UNK
     Route: 048
  6. LASIX [Concomitant]
     Dosage: UNK UNK
     Route: 048

REACTIONS (15)
  - BLOOD GLUCOSE INCREASED [None]
  - CHEST PAIN [None]
  - CONSTIPATION [None]
  - DIABETES MELLITUS [None]
  - DIZZINESS [None]
  - DRUG INEFFECTIVE [None]
  - DRUG INTERACTION [None]
  - DYSURIA [None]
  - HEADACHE [None]
  - HEART RATE INCREASED [None]
  - HERNIA [None]
  - HYPERTENSION [None]
  - HYPOTENSION [None]
  - NOCTURIA [None]
  - VISION BLURRED [None]
